FAERS Safety Report 7945216-2 (Version None)
Quarter: 2011Q4

REPORT INFORMATION
  Report Type: 
  Country: None (occurrence: None)
  Receive Date: 20111129
  Receipt Date: 20110406
  Transmission Date: 20120403
  Serious: No
  Sender: FDA-Public Use
  Company Number: US-GLAXOSMITHKLINE-A0921668A

PATIENT
  Age: 81 Year
  Sex: Male

DRUGS (3)
  1. FLOVENT [Suspect]
     Indication: DYSPNOEA
     Dosage: 1PUFF TWICE PER DAY
     Route: 055
     Dates: start: 20110328, end: 20110403
  2. VENTOLIN [Concomitant]
  3. SPIRIVA [Concomitant]

REACTIONS (1)
  - DYSPNOEA [None]
